FAERS Safety Report 8564810-1 (Version None)
Quarter: 2012Q3

REPORT INFORMATION
  Report Type: 
  Country: None (occurrence: None)
  Receive Date: 20120803
  Receipt Date: 20120727
  Transmission Date: 20120928
  Serious: Yes (Hospitalization, Other)
  Sender: FDA-Public Use
  Company Number: US-009507513-2012SP010634

PATIENT

DRUGS (3)
  1. NUVARING [Suspect]
     Indication: CONTRACEPTION
     Dates: start: 20070701, end: 20080801
  2. NUVARING [Suspect]
     Dates: start: 20091001, end: 20100324
  3. NUVARING [Suspect]
     Indication: ACNE
     Dates: start: 20081117, end: 20090501

REACTIONS (5)
  - ANXIETY [None]
  - PULMONARY EMBOLISM [None]
  - URINARY TRACT INFECTION [None]
  - BLOOD POTASSIUM DECREASED [None]
  - CONSTIPATION [None]
